FAERS Safety Report 7633702-4 (Version None)
Quarter: 2011Q3

REPORT INFORMATION
  Report Type: 
  Country: None (occurrence: None)
  Receive Date: 20110725
  Receipt Date: 20110720
  Transmission Date: 20111222
  Serious: Yes (Death)
  Sender: FDA-Public Use
  Company Number: GB-SANOFI-AVENTIS-2011SA046367

PATIENT
  Age: 67 Year
  Sex: Male

DRUGS (7)
  1. OMEPRAZOLE [Concomitant]
     Indication: GASTRITIS
     Dates: start: 20101218, end: 20110303
  2. METOCLOPRAMIDE [Concomitant]
     Dates: start: 20110118
  3. OXALIPLATIN [Suspect]
     Indication: RECTAL CANCER METASTATIC
     Route: 042
     Dates: start: 20110118, end: 20110208
  4. CAPECITABINE [Suspect]
     Indication: RECTAL CANCER METASTATIC
     Route: 048
     Dates: start: 20110118, end: 20110208
  5. LOPERAMIDE [Concomitant]
     Dates: start: 20110118
  6. AVASTIN [Suspect]
     Indication: RECTAL CANCER METASTATIC
     Route: 042
     Dates: start: 20110118, end: 20110208
  7. CYCLIZINE [Concomitant]
     Dates: start: 20110118

REACTIONS (1)
  - FISTULA [None]
